FAERS Safety Report 8342911-0 (Version None)
Quarter: 2012Q2

REPORT INFORMATION
  Report Type: 
  Country: None (occurrence: None)
  Receive Date: 20120508
  Receipt Date: 20120504
  Transmission Date: 20120825
  Serious: Yes (Other)
  Sender: FDA-Public Use
  Company Number: US-PFIZER INC-2012110323

PATIENT
  Sex: Male
  Weight: 94.331 kg

DRUGS (2)
  1. FOLIC ACID [Concomitant]
     Dosage: UNK
  2. AMLODIPINE BESYLATE [Suspect]
     Indication: HYPERTENSION
     Dosage: 10 MG, 1X/DAY
     Route: 048
     Dates: start: 20120402, end: 20120422

REACTIONS (2)
  - JOINT SWELLING [None]
  - DIZZINESS [None]
